FAERS Safety Report 9997350 (Version 1)
Quarter: 2014Q1

REPORT INFORMATION
  Report Type: Spontaneous
  Country: HU (occurrence: HU)
  Receive Date: 20140311
  Receipt Date: 20140311
  Transmission Date: 20141002
  Serious: Yes (Hospitalization)
  Sender: FDA-Public Use
  Company Number: HU-JNJFOC-20140305686

PATIENT
  Age: 63 Year
  Sex: Female

DRUGS (5)
  1. XARELTO [Suspect]
     Indication: EMBOLISM VENOUS
     Route: 048
  2. XARELTO [Suspect]
     Indication: DEEP VEIN THROMBOSIS
     Route: 048
  3. CALCIUM [Concomitant]
     Route: 065
  4. RYTMONORMA [Concomitant]
     Route: 065
  5. CONTROLOC [Concomitant]
     Route: 065

REACTIONS (1)
  - Urticaria [Unknown]
